FAERS Safety Report 17880208 (Version 1)
Quarter: 2020Q2

REPORT INFORMATION
  Report Type: Report from Study
  Country: US (occurrence: US)
  Receive Date: 20200610
  Receipt Date: 20200610
  Transmission Date: 20200714
  Serious: Yes (Hospitalization)
  Sender: FDA-Public Use
  Company Number: US-BAYER-2020-055072

PATIENT
  Age: 67 Year
  Sex: Male

DRUGS (3)
  1. STIVARGA [Suspect]
     Active Substance: REGORAFENIB
     Indication: COLORECTAL CANCER
     Dosage: 40 MG, QOD
     Dates: start: 20200427
  2. STIVARGA [Suspect]
     Active Substance: REGORAFENIB
     Indication: RECTAL CANCER
     Dosage: DAILY DOSE 40 MG
  3. STIVARGA [Suspect]
     Active Substance: REGORAFENIB
     Indication: COLORECTAL CANCER
     Dosage: DAILY DOSE 80 MG IN DAYS 1-3-5-7
     Dates: start: 20200330

REACTIONS (9)
  - Hospitalisation [Not Recovered/Not Resolved]
  - Blister [None]
  - Dysphonia [Not Recovered/Not Resolved]
  - Abdominal pain upper [Not Recovered/Not Resolved]
  - Weight decreased [None]
  - Nausea [None]
  - Fatigue [Not Recovered/Not Resolved]
  - Exercise tolerance decreased [None]
  - Off label use [None]

NARRATIVE: CASE EVENT DATE: 20200330
